FAERS Safety Report 8154817-0 (Version None)
Quarter: 2012Q1

REPORT INFORMATION
  Report Type: 
  Country: None (occurrence: None)
  Receive Date: 20120221
  Receipt Date: 20120210
  Transmission Date: 20120608
  Serious: Yes (Other)
  Sender: FDA-Public Use
  Company Number: PHHY2010DK86317

PATIENT
  Sex: Male
  Weight: 74 kg

DRUGS (11)
  1. ZOMETA [Suspect]
     Indication: OSTEOPOROSIS
     Dosage: 4 MG, PER 100MI NACL
     Dates: start: 20031016
  2. FOSAMAX [Concomitant]
     Dosage: DOSIS: IF?LGE RECEPT, HOSPITALSORDINERET.
     Route: 048
     Dates: start: 20060410, end: 20070510
  3. ZOMETA [Suspect]
     Dosage: 4 MG, PER 100MI NACL
     Dates: start: 20040114
  4. DIDRONEL [Suspect]
     Dosage: UNK UKN, UNK
     Route: 048
     Dates: start: 20010410, end: 20020610
  5. CALCIFEROL [Concomitant]
     Dates: start: 20020601, end: 20031001
  6. ZOMETA [Suspect]
     Dosage: 4 MG, PER 100MI NACL
     Dates: start: 20040715
  7. DIDRONEL [Suspect]
     Indication: OSTEOPOROSIS
     Route: 048
     Dates: start: 20010301, end: 20020601
  8. FORTEO [Concomitant]
  9. SODIUM FLUORIDE [Concomitant]
     Dates: start: 20020601, end: 20031001
  10. FOSAMAX [Concomitant]
     Indication: OSTEOPOROSIS
     Dates: start: 20060401, end: 20070501
  11. NATRIUMFLUORID [Concomitant]
     Dates: start: 20020601, end: 20031001

REACTIONS (4)
  - PAIN IN JAW [None]
  - HYPOPHAGIA [None]
  - OSTEONECROSIS OF JAW [None]
  - IMPAIRED HEALING [None]
